FAERS Safety Report 4458311-X (Version None)
Quarter: 2004Q3

REPORT INFORMATION
  Report Type: 
  Country: None (occurrence: None)
  Receive Date: 20040917
  Receipt Date: 20040426
  Transmission Date: 20050211
  Serious: Yes (Hospitalization)
  Sender: FDA-Public Use
  Company Number: US-JNJFOC-20040102260

PATIENT
  Age: 50 Year
  Sex: Female

DRUGS (4)
  1. TOPAMAX [Suspect]
     Indication: MANIA
     Dosage: 200 MG, 1 IN 1 DAY ; 400 MG, IN 1 DAY  :  ORAL
     Route: 048
     Dates: end: 20031001
  2. TOPAMAX [Suspect]
     Indication: MANIA
     Dosage: 200 MG, 1 IN 1 DAY ; 400 MG, IN 1 DAY  :  ORAL
     Route: 048
     Dates: start: 20031001
  3. LITHIUM CARBONATE [Concomitant]
  4. SEROQUEL [Concomitant]

REACTIONS (2)
  - MANIA [None]
  - UNEXPECTED THERAPEUTIC DRUG EFFECT [None]
